FAERS Safety Report 6847802-X (Version None)
Quarter: 2010Q3

REPORT INFORMATION
  Report Type: 
  Country: None (occurrence: None)
  Receive Date: 20100716
  Receipt Date: 20100705
  Transmission Date: 20110219
  Serious: Yes (Hospitalization)
  Sender: FDA-Public Use
  Company Number: PL-JNJFOC-20100702140

PATIENT
  Sex: Male
  Weight: 100.8 kg

DRUGS (10)
  1. GOLIMUMAB [Suspect]
     Indication: RHEUMATOID ARTHRITIS
     Route: 058
  2. GOLIMUMAB [Suspect]
     Route: 058
  3. METHOTREXATE [Suspect]
     Indication: RHEUMATOID ARTHRITIS
     Route: 048
  4. FOLIC ACID [Concomitant]
  5. TRAMADOL HCL [Concomitant]
  6. METHOTREXATE [Concomitant]
  7. CONCOR [Concomitant]
  8. ATORVASTATIN [Concomitant]
  9. ACARD [Concomitant]
  10. OMEPRAZOLE [Concomitant]

REACTIONS (5)
  - HAEMATOCRIT DECREASED [None]
  - HAEMOGLOBIN DECREASED [None]
  - MYOCARDIAL ISCHAEMIA [None]
  - POSTOPERATIVE WOUND INFECTION [None]
  - POSTPERICARDIOTOMY SYNDROME [None]
